FAERS Safety Report 7018200-3 (Version None)
Quarter: 2010Q3

REPORT INFORMATION
  Report Type: 
  Country: None (occurrence: None)
  Receive Date: 20100928
  Receipt Date: 20100917
  Transmission Date: 20110219
  Serious: Yes (Other)
  Sender: FDA-Public Use
  Company Number: US-JNJFOC-20100112145

PATIENT
  Sex: Female
  Weight: 79.38 kg

DRUGS (3)
  1. TYLENOL (CAPLET) [Suspect]
     Indication: ARTHRALGIA
     Route: 048
  2. TYLENOL (CAPLET) [Suspect]
     Indication: ARTHRITIS
     Route: 048
  3. LEVOTHYROXINE SODIUM [Concomitant]
     Indication: THYROID HORMONE REPLACEMENT THERAPY

REACTIONS (8)
  - DECREASED APPETITE [None]
  - DIARRHOEA [None]
  - GASTRITIS EROSIVE [None]
  - HAEMORRHOIDS [None]
  - PRODUCT ODOUR ABNORMAL [None]
  - PRODUCT QUALITY ISSUE [None]
  - PRODUCT TASTE ABNORMAL [None]
  - WEIGHT DECREASED [None]
